FAERS Safety Report 19957951 (Version 1)
Quarter: 2021Q4

REPORT INFORMATION
  Report Type: Spontaneous
  Country: US (occurrence: US)
  Receive Date: 20211015
  Receipt Date: 20211015
  Transmission Date: 20220303
  Serious: Yes (Other)
  Sender: FDA-Public Use
  Company Number: US-SA-SAC20211011001294

PATIENT
  Age: 76 Year
  Sex: Female

DRUGS (2)
  1. ZANTAC [Suspect]
     Active Substance: RANITIDINE HYDROCHLORIDE
     Indication: Gastrooesophageal reflux disease
     Dosage: UNK, QD
     Dates: start: 199109, end: 201709
  2. ZANTAC [Suspect]
     Active Substance: RANITIDINE HYDROCHLORIDE
     Indication: Dyspepsia

REACTIONS (3)
  - Bladder cancer [Unknown]
  - Renal cancer stage I [Unknown]
  - Ureteric cancer [Unknown]

NARRATIVE: CASE EVENT DATE: 20190101
